FAERS Safety Report 24563993 (Version 1)
Quarter: 2024Q4

REPORT INFORMATION
  Report Type: Report from Study
  Country: CA (occurrence: CA)
  Receive Date: 20241030
  Receipt Date: 20241030
  Transmission Date: 20250114
  Serious: Yes (Other)
  Sender: JOHNSON AND JOHNSON
  Company Number: CA-JNJFOC-20240478393

PATIENT
  Age: 19 Year
  Sex: Male

DRUGS (4)
  1. REMICADE [Suspect]
     Active Substance: INFLIXIMAB
     Indication: Crohn^s disease
     Dosage: EXPIRY DATE MAR-2027
     Route: 041
     Dates: start: 20190228
  2. REMICADE [Suspect]
     Active Substance: INFLIXIMAB
     Route: 041
     Dates: start: 20190228
  3. REMICADE [Suspect]
     Active Substance: INFLIXIMAB
     Route: 041
     Dates: start: 20150327
  4. ALBUTEROL [Concomitant]
     Active Substance: ALBUTEROL

REACTIONS (7)
  - Crohn^s disease [Unknown]
  - Decreased appetite [Recovered/Resolved]
  - Product dose omission issue [Unknown]
  - Chest pain [Not Recovered/Not Resolved]
  - Vomiting [Recovered/Resolved]
  - Influenza [Recovered/Resolved]
  - Headache [Recovered/Resolved]

NARRATIVE: CASE EVENT DATE: 20240415
